FAERS Safety Report 18612157 (Version 1)
Quarter: 2020Q4

REPORT INFORMATION
  Report Type: Spontaneous
  Country: US (occurrence: US)
  Receive Date: 20201214
  Receipt Date: 20201214
  Transmission Date: 20210114
  Serious: No
  Sender: FDA-Public Use
  Company Number: US-BAYER-2020-268109

PATIENT

DRUGS (4)
  1. MELOXICAM. [Suspect]
     Active Substance: MELOXICAM
  2. XELJANZ XR [Suspect]
     Active Substance: TOFACITINIB CITRATE
     Indication: RHEUMATOID ARTHRITIS
     Dosage: 11 MG, QD
     Route: 048
     Dates: start: 20201201
  3. ALEVE [Suspect]
     Active Substance: NAPROXEN SODIUM
  4. METHOTREXATE. [Suspect]
     Active Substance: METHOTREXATE

REACTIONS (1)
  - Therapeutic product effect incomplete [Unknown]
